FAERS Safety Report 24567272 (Version 1)
Quarter: 2024Q4

REPORT INFORMATION
  Report Type: Spontaneous
  Country: US (occurrence: US)
  Receive Date: 20241030
  Receipt Date: 20241030
  Transmission Date: 20250115
  Serious: Yes (Death, Other)
  Sender: ALEXION PHARMACEUTICALS
  Company Number: US-ASTRAZENECA-202410GLO022325US

PATIENT
  Age: 58 Year

DRUGS (5)
  1. LYNPARZA [Suspect]
     Active Substance: OLAPARIB
     Indication: Ovarian cancer
     Dosage: COMPLETED ABOUT TWO YEARS AGO
  2. LYNPARZA [Suspect]
     Active Substance: OLAPARIB
     Dosage: COMPLETED ABOUT TWO YEARS AGO
  3. LYNPARZA [Suspect]
     Active Substance: OLAPARIB
     Dosage: COMPLETED ABOUT TWO YEARS AGO
  4. LYNPARZA [Suspect]
     Active Substance: OLAPARIB
     Dosage: COMPLETED ABOUT TWO YEARS AGO
  5. CARBOPLATIN\PACLITAXEL [Concomitant]
     Active Substance: CARBOPLATIN\PACLITAXEL
     Indication: Ovarian cancer

REACTIONS (5)
  - Acute myeloid leukaemia [Fatal]
  - Leukaemic infiltration [Unknown]
  - Haemorrhage intracranial [Unknown]
  - Febrile neutropenia [Unknown]
  - Disseminated intravascular coagulation [Unknown]
